FAERS Safety Report 8923169 (Version 1)
Quarter: 2012Q4

REPORT INFORMATION
  Report Type: Spontaneous
  Country: IT (occurrence: None)
  Receive Date: 20121109
  Receipt Date: 20121109
  Transmission Date: 20130627
  Serious: Yes (Life-Threatening)
  Sender: FDA-Public Use
  Company Number: 2011S1000873

PATIENT
  Age: 76 Year
  Sex: Male

DRUGS (9)
  1. CUBICIN [Suspect]
     Indication: ENDOCARDITIS
     Route: 042
     Dates: start: 20111102, end: 20111105
  2. RIFADIN [Suspect]
     Indication: ENDOCARDITIS
     Route: 042
     Dates: start: 20111008, end: 20111102
  3. VANCOMYCIN [Suspect]
     Indication: ENDOCARDITIS
     Route: 042
     Dates: start: 20111007, end: 20111102
  4. ROCEFIN [Suspect]
     Indication: ENDOCARDITIS
     Route: 042
     Dates: start: 20111102, end: 20111104
  5. PANTORC [Suspect]
     Indication: PROPHYLAXIS AGAINST GASTROINTESTINAL ULCER
     Route: 042
     Dates: start: 20090101, end: 20111107
  6. GENTAMICIN SULFATE [Suspect]
     Indication: ENDOCARDITIS
     Route: 042
     Dates: start: 20111007, end: 20111108
  7. RAMIPRIL [Concomitant]
  8. ACETYLSALICYLIC ACID [Concomitant]
  9. CIPROFLOXACIN [Concomitant]

REACTIONS (2)
  - Drug reaction with eosinophilia and systemic symptoms [None]
  - Drug interaction [None]
